FAERS Safety Report 10609541 (Version 1)
Quarter: 2014Q4

REPORT INFORMATION
  Report Type: Spontaneous
  Country: US (occurrence: US)
  Receive Date: 20141126
  Receipt Date: 20141126
  Transmission Date: 20150529
  Serious: No
  Sender: FDA-Public Use
  Company Number: US-BIOGENIDEC-2014BI121796

PATIENT
  Sex: Female

DRUGS (1)
  1. TECFIDERA [Suspect]
     Active Substance: DIMETHYL FUMARATE
     Indication: PRODUCT USED FOR UNKNOWN INDICATION
     Route: 048
     Dates: end: 20141030

REACTIONS (4)
  - Vomiting [Recovered/Resolved]
  - Abdominal pain upper [Recovered/Resolved]
  - Dyspepsia [Recovered/Resolved]
  - Diabetes mellitus [Unknown]
